FAERS Safety Report 20598822 (Version 3)
Quarter: 2022Q2

REPORT INFORMATION
  Report Type: Report from Study
  Country: BE (occurrence: BE)
  Receive Date: 20220315
  Receipt Date: 20220419
  Transmission Date: 20220721
  Serious: Yes (Hospitalization, Other)
  Sender: FDA-Public Use
  Company Number: BE-BRISTOL-MYERS SQUIBB COMPANY-BMS-2022-024620

PATIENT
  Age: 63 Year
  Sex: Female
  Weight: 57.00 kg

DRUGS (31)
  1. LUCITANIB [Suspect]
     Active Substance: LUCITANIB
     Indication: Neoplasm malignant
     Dosage: MOST RECENT DOSE OF NIVOLUMAB ON 07-FEB-2022
     Route: 048
     Dates: start: 20211102
  2. LUCITANIB [Suspect]
     Active Substance: LUCITANIB
  3. NIVOLUMAB\RELATLIMAB-RMBW [Suspect]
     Active Substance: NIVOLUMAB\RELATLIMAB-RMBW
  4. BISOPROLOL FUMARATE\PERINDOPRIL ARGININE [Concomitant]
     Active Substance: BISOPROLOL FUMARATE\PERINDOPRIL ARGININE
     Indication: Product used for unknown indication
     Route: 065
     Dates: start: 20211224
  5. BISOPROLOL FUMARATE\PERINDOPRIL ARGININE [Concomitant]
     Active Substance: BISOPROLOL FUMARATE\PERINDOPRIL ARGININE
  6. BISOPROLOL FUMARATE\PERINDOPRIL ARGININE [Concomitant]
     Active Substance: BISOPROLOL FUMARATE\PERINDOPRIL ARGININE
  7. BISOPROLOL FUMARATE\PERINDOPRIL ARGININE [Concomitant]
     Active Substance: BISOPROLOL FUMARATE\PERINDOPRIL ARGININE
  8. ALPRAZOLAM [Concomitant]
     Active Substance: ALPRAZOLAM
     Indication: Product used for unknown indication
     Route: 065
     Dates: start: 20211223
  9. ALPRAZOLAM [Concomitant]
     Active Substance: ALPRAZOLAM
  10. ALPRAZOLAM [Concomitant]
     Active Substance: ALPRAZOLAM
  11. ALPRAZOLAM [Concomitant]
     Active Substance: ALPRAZOLAM
  12. PANTOMED [DEXPANTHENOL] [Concomitant]
     Indication: Product used for unknown indication
     Route: 065
     Dates: start: 20140101
  13. PANTOMED [DEXPANTHENOL] [Concomitant]
  14. PANTOMED [DEXPANTHENOL] [Concomitant]
  15. PANTOMED [DEXPANTHENOL] [Concomitant]
  16. APOCARD RETARD [Concomitant]
     Indication: Product used for unknown indication
     Route: 065
     Dates: start: 20190101
  17. APOCARD RETARD [Concomitant]
  18. APOCARD RETARD [Concomitant]
  19. APOCARD RETARD [Concomitant]
  20. EDOXABAN TOSYLATE [Concomitant]
     Active Substance: EDOXABAN TOSYLATE
     Indication: Product used for unknown indication
     Route: 065
     Dates: start: 20210901
  21. EDOXABAN TOSYLATE [Concomitant]
     Active Substance: EDOXABAN TOSYLATE
  22. EDOXABAN TOSYLATE [Concomitant]
     Active Substance: EDOXABAN TOSYLATE
  23. EDOXABAN TOSYLATE [Concomitant]
     Active Substance: EDOXABAN TOSYLATE
  24. LITICAN [ALIZAPRIDE] [Concomitant]
     Indication: Product used for unknown indication
     Route: 065
     Dates: start: 20210601
  25. LITICAN [ALIZAPRIDE] [Concomitant]
  26. LITICAN [ALIZAPRIDE] [Concomitant]
  27. LITICAN [ALIZAPRIDE] [Concomitant]
  28. BISOPROLOL [Concomitant]
     Active Substance: BISOPROLOL
     Indication: Product used for unknown indication
     Route: 065
     Dates: start: 20211203
  29. BISOPROLOL [Concomitant]
     Active Substance: BISOPROLOL
  30. BISOPROLOL [Concomitant]
     Active Substance: BISOPROLOL
  31. BISOPROLOL [Concomitant]
     Active Substance: BISOPROLOL

REACTIONS (2)
  - General physical health deterioration [Recovered/Resolved]
  - Cardiac failure [Recovered/Resolved]

NARRATIVE: CASE EVENT DATE: 20220207
